FAERS Safety Report 7889658-2 (Version None)
Quarter: 2011Q4

REPORT INFORMATION
  Report Type: 
  Country: None (occurrence: None)
  Receive Date: 20111103
  Receipt Date: 20111031
  Transmission Date: 20120403
  Serious: Yes (Death, Other)
  Sender: FDA-Public Use
  Company Number: US-PFIZER INC-2008034523

PATIENT
  Sex: Male

DRUGS (1)
  1. CHANTIX [Suspect]
     Indication: SMOKING CESSATION THERAPY
     Dosage: STARTING MONTH PAK
     Dates: start: 20070919, end: 20071018

REACTIONS (8)
  - SUICIDAL IDEATION [None]
  - DEPRESSION [None]
  - GUN SHOT WOUND [None]
  - PERSONALITY CHANGE [None]
  - NAUSEA [None]
  - ABNORMAL DREAMS [None]
  - COMPLETED SUICIDE [None]
  - ANXIETY [None]
